FAERS Safety Report 19246312 (Version 1)
Quarter: 2021Q2

REPORT INFORMATION
  Report Type: Spontaneous
  Country: CA (occurrence: CA)
  Receive Date: 20210512
  Receipt Date: 20210512
  Transmission Date: 20210717
  Serious: Yes (Disabling)
  Sender: FDA-Public Use
  Company Number: CA-TEVA-2021-CA-1908962

PATIENT
  Age: 74 Year
  Sex: Female

DRUGS (6)
  1. FOLIC ACID. [Concomitant]
     Active Substance: FOLIC ACID
  2. ZOPICLONE [Concomitant]
     Active Substance: ZOPICLONE
  3. METHOTREXATE. [Concomitant]
     Active Substance: METHOTREXATE
  4. HYDROCHLOROQUINE [Suspect]
     Active Substance: HYDROXYCHLOROQUINE SULFATE
     Route: 065
  5. PREDNISONE. [Concomitant]
     Active Substance: PREDNISONE
  6. TEVA?TAMOXIFEN [Suspect]
     Active Substance: TAMOXIFEN
     Indication: BREAST CANCER
     Dosage: 20 MILLIGRAM DAILY;
     Route: 048

REACTIONS (4)
  - Retinal detachment [Unknown]
  - Retinal disorder [Unknown]
  - Vitreous floaters [Unknown]
  - Visual impairment [Unknown]
